FAERS Safety Report 13818729 (Version 1)
Quarter: 2017Q3

REPORT INFORMATION
  Report Type: Report from Study
  Country: US (occurrence: US)
  Receive Date: 20170731
  Receipt Date: 20170731
  Transmission Date: 20171127
  Serious: No
  Sender: FDA-Public Use
  Company Number: US-EXELIXIS-CABO-17008903

PATIENT
  Sex: Male

DRUGS (8)
  1. DEXAMETHASONE. [Concomitant]
     Active Substance: DEXAMETHASONE
  2. CABOMETYX [Suspect]
     Active Substance: CABOZANTINIB S-MALATE
     Indication: RENAL CANCER
     Dosage: 60 MG, QD
     Route: 048
     Dates: start: 20160810, end: 201609
  3. OMEPRAZOLE. [Concomitant]
     Active Substance: OMEPRAZOLE
  4. CABOMETYX [Suspect]
     Active Substance: CABOZANTINIB S-MALATE
     Indication: BONE CANCER
     Dosage: 40 MG, QD
     Route: 048
     Dates: start: 201609
  5. BROMALINE [Concomitant]
  6. ANTIHISTAMINES [Concomitant]
     Active Substance: ANTIHISTAMINES NOS
  7. ASPIRIN. [Concomitant]
     Active Substance: ASPIRIN
  8. LEVOTHYROXINE. [Concomitant]
     Active Substance: LEVOTHYROXINE

REACTIONS (5)
  - Diarrhoea [Recovering/Resolving]
  - Skin papilloma [Unknown]
  - Skin fissures [Unknown]
  - Blister [Unknown]
  - Hair colour changes [Unknown]
